FAERS Safety Report 9759869 (Version 5)
Quarter: 2017Q1

REPORT INFORMATION
  Report Type: Report from Study
  Country: JP (occurrence: JP)
  Receive Date: 20131216
  Receipt Date: 20170126
  Transmission Date: 20170429
  Serious: Yes (Death, Life-Threatening, Other)
  Sender: FDA-Public Use
  Company Number: JP-CELGENEUS-087-50794-11041710

PATIENT
  Age: 87 Year
  Sex: Male

DRUGS (24)
  1. ALLELOCK [Concomitant]
     Active Substance: OLOPATADINE HYDROCHLORIDE
     Indication: PRODUCT USED FOR UNKNOWN INDICATION
     Route: 048
     Dates: start: 20110410, end: 20110523
  2. FORSENID [Concomitant]
     Active Substance: SENNOSIDES A AND B
     Indication: PRODUCT USED FOR UNKNOWN INDICATION
     Route: 065
     Dates: end: 20121210
  3. VIDAZA [Suspect]
     Active Substance: AZACITIDINE
     Dosage: 75 MILLIGRAM
     Route: 041
     Dates: start: 20110606, end: 20110614
  4. VIDAZA [Suspect]
     Active Substance: AZACITIDINE
     Dosage: 75 MILLIGRAM/SQ. METER
     Route: 041
     Dates: start: 20110707, end: 20110715
  5. VIDAZA [Suspect]
     Active Substance: AZACITIDINE
     Dosage: 75 MILLIGRAM/SQ. METER
     Route: 041
     Dates: start: 20110905, end: 20110913
  6. TAKEPRON [Concomitant]
     Active Substance: LANSOPRAZOLE
     Indication: PRODUCT USED FOR UNKNOWN INDICATION
     Route: 065
     Dates: end: 20121210
  7. VIDAZA [Suspect]
     Active Substance: AZACITIDINE
     Dosage: 75 MILLIGRAM/SQ. METER
     Route: 058
     Dates: start: 20110411, end: 20110412
  8. VIDAZA [Suspect]
     Active Substance: AZACITIDINE
     Dosage: 75 MILLIGRAM/SQ. METER
     Route: 041
     Dates: start: 20110809, end: 20110817
  9. VIDAZA [Suspect]
     Active Substance: AZACITIDINE
     Indication: MYELODYSPLASTIC SYNDROME
     Dosage: 75 MILLIGRAM/SQ. METER
     Route: 058
     Dates: start: 20110314, end: 20110318
  10. VIDAZA [Suspect]
     Active Substance: AZACITIDINE
     Dosage: 75 MILLIGRAM/SQ. METER
     Route: 041
     Dates: start: 20111005, end: 20111014
  11. VIDAZA [Suspect]
     Active Substance: AZACITIDINE
     Dosage: 75 MILLIGRAM/SQ. METER
     Route: 041
     Dates: start: 20111205, end: 20111213
  12. MAGMITT [Concomitant]
     Active Substance: MAGNESIUM OXIDE
     Indication: PRODUCT USED FOR UNKNOWN INDICATION
     Dosage: 1.5 GRAM
     Route: 048
  13. MAGMITT [Concomitant]
     Active Substance: MAGNESIUM OXIDE
     Dosage: 0.5
     Route: 048
     Dates: start: 20110401, end: 20121210
  14. VIDAZA [Suspect]
     Active Substance: AZACITIDINE
     Dosage: 75 MILLIGRAM/SQ. METER
     Route: 041
     Dates: start: 20111107, end: 20111115
  15. VIDAZA [Suspect]
     Active Substance: AZACITIDINE
     Dosage: 75 MILLIGRAM/SQ. METER
     Route: 041
     Dates: start: 20120403, end: 20120411
  16. LASIX [Concomitant]
     Active Substance: FUROSEMIDE
     Indication: PRODUCT USED FOR UNKNOWN INDICATION
     Dosage: 20 MILLIGRAM
     Route: 048
     Dates: start: 201103
  17. MAGMITT [Concomitant]
     Active Substance: MAGNESIUM OXIDE
     Dosage: 2 GRAM
     Route: 048
     Dates: start: 20110402
  18. EBASTEL [Concomitant]
     Active Substance: EBASTINE
     Indication: PRODUCT USED FOR UNKNOWN INDICATION
     Route: 048
     Dates: start: 20110323, end: 20110409
  19. EBASTEL [Concomitant]
     Active Substance: EBASTINE
     Route: 065
     Dates: end: 20121210
  20. VIDAZA [Suspect]
     Active Substance: AZACITIDINE
     Dosage: 75 MILLIGRAM/SQ. METER
     Route: 041
     Dates: start: 20120111, end: 20120121
  21. VIDAZA [Suspect]
     Active Substance: AZACITIDINE
     Dosage: 75 MILLIGRAM/SQ. METER
     Route: 041
     Dates: start: 20120306, end: 20120314
  22. PANTOSIN [Concomitant]
     Active Substance: PANTETHINE
     Indication: PRODUCT USED FOR UNKNOWN INDICATION
     Route: 065
     Dates: start: 20110402
  23. VIDAZA [Suspect]
     Active Substance: AZACITIDINE
     Dosage: 75 MILLIGRAM/SQ. METER
     Route: 041
     Dates: start: 20120207, end: 20120215
  24. LASIX [Concomitant]
     Active Substance: FUROSEMIDE
     Dosage: 40 MILLIGRAM
     Route: 048

REACTIONS (5)
  - Myelodysplastic syndrome [Fatal]
  - Drug eruption [Recovering/Resolving]
  - Constipation [Recovering/Resolving]
  - Neutrophil count decreased [Recovered/Resolved]
  - Hepatic function abnormal [Recovering/Resolving]

NARRATIVE: CASE EVENT DATE: 2011
